FAERS Safety Report 7020016-9 (Version None)
Quarter: 2010Q3

REPORT INFORMATION
  Report Type: 
  Country: None (occurrence: None)
  Receive Date: 20100927
  Receipt Date: 20100917
  Transmission Date: 20110219
  Serious: Yes (Other)
  Sender: FDA-Public Use
  Company Number: 1-22510777

PATIENT
  Sex: Female
  Weight: 55.7924 kg

DRUGS (9)
  1. CLONIDINE HCL [Suspect]
     Indication: HYPERTENSION
     Dosage: 3 TABS, PRN SBP } 160, ORAL
     Route: 048
     Dates: start: 20070101
  2. CATAPRES-TTS-2 [Suspect]
     Indication: HYPERTENSION
     Dosage: 0.2 MG, TRANSDERMAL
     Route: 062
  3. LISINOPRIL [Suspect]
     Indication: HYPERTENSION
     Dosage: 3 TABLETS ONCE DAILY
     Dates: start: 20040101, end: 20040419
  4. FUROSEMIDE [Concomitant]
  5. MINOXIDIL [Concomitant]
  6. DILTIAZEM [Concomitant]
  7. ACIPHEX [Concomitant]
  8. NEXIUM [Concomitant]
  9. RANITIDINE [Concomitant]

REACTIONS (5)
  - BLOOD PRESSURE SYSTOLIC INCREASED [None]
  - COUGH [None]
  - GASTROOESOPHAGEAL REFLUX DISEASE [None]
  - RENAL FAILURE CHRONIC [None]
  - VASCULAR CALCIFICATION [None]
